FAERS Safety Report 25024421 (Version 1)
Quarter: 2025Q1

REPORT INFORMATION
  Report Type: Spontaneous
  Country: US (occurrence: None)
  Receive Date: 20250228
  Receipt Date: 20250228
  Transmission Date: 20250408
  Serious: Yes (Other)
  Sender: FDA-CTU
  Company Number: None

PATIENT
  Age: 31 Year
  Sex: Female
  Weight: 111 kg

DRUGS (1)
  1. TIRZEPATIDE [Suspect]
     Active Substance: TIRZEPATIDE
     Indication: Obesity
     Dosage: 12.5 MG WEEKLY SQ?
     Route: 058
     Dates: start: 20240722, end: 20241029

REACTIONS (2)
  - Pregnancy [None]
  - Umbilical cord vascular disorder [None]

NARRATIVE: CASE EVENT DATE: 20250226
